FAERS Safety Report 17759103 (Version 1)
Quarter: 2020Q2

REPORT INFORMATION
  Report Type: Report from Study
  Country: US (occurrence: US)
  Receive Date: 20200508
  Receipt Date: 20200508
  Transmission Date: 20200714
  Serious: Yes (Hospitalization, Other)
  Sender: FDA-Public Use
  Company Number: US-AUROBINDO-AUR-APL-2020-024179

PATIENT

DRUGS (3)
  1. BUPIVACAINE HYDROCHLORIDE INJECTION USP 0.25% (2.5 MG/ML) [Suspect]
     Active Substance: BUPIVACAINE HYDROCHLORIDE
     Indication: THORACIC OPERATION
     Dosage: 2.5 MILLIGRAM/MILILITER (50% MIXTURE)
     Route: 065
  2. ACETAMINOPHEN. [Suspect]
     Active Substance: ACETAMINOPHEN
     Indication: THORACIC OPERATION
     Dosage: UNK
     Route: 042
  3. ROPIVACAINE HYDROCHLORIDE INJECTION [Suspect]
     Active Substance: ROPIVACAINE HYDROCHLORIDE
     Indication: THORACIC OPERATION
     Dosage: 7.5 MILLIGRAM/MILILITER (50% MIXTURE)
     Route: 065

REACTIONS (2)
  - Condition aggravated [Unknown]
  - Pulmonary function test decreased [Unknown]
